FAERS Safety Report 25470349 (Version 1)
Quarter: 2025Q2

REPORT INFORMATION
  Report Type: Spontaneous
  Country: US (occurrence: US)
  Receive Date: 20250623
  Receipt Date: 20250623
  Transmission Date: 20250717
  Serious: Yes (Other)
  Sender: ABBVIE
  Company Number: US-ABBVIE-6336381

PATIENT
  Sex: Male

DRUGS (1)
  1. REFRESH RELIEVA PF XTRA [Suspect]
     Active Substance: CARBOXYMETHYLCELLULOSE SODIUM\GLYCERIN
     Indication: Dry eye
     Route: 047

REACTIONS (3)
  - Cataract [Unknown]
  - Product container issue [Unknown]
  - Accidental exposure to product [Unknown]
